FAERS Safety Report 7433924-1 (Version None)
Quarter: 2011Q2

REPORT INFORMATION
  Report Type: 
  Country: None (occurrence: None)
  Receive Date: 20110420
  Receipt Date: 20110420
  Transmission Date: 20111010
  Serious: Yes (Death)
  Sender: FDA-Public Use
  Company Number: None

PATIENT
  Age: 44 Year
  Sex: Female

DRUGS (3)
  1. PROCHLORPERAZINE TAB [Concomitant]
  2. GLIPIZIDE [Concomitant]
  3. REVLIMID [Suspect]
     Indication: MULTIPLE MYELOMA
     Dosage: REVLIMID 10 MG DAILY ORALLY
     Route: 048
     Dates: start: 20101101

REACTIONS (12)
  - PULSELESS ELECTRICAL ACTIVITY [None]
  - HAEMORRHAGE INTRACRANIAL [None]
  - RENAL FAILURE ACUTE [None]
  - FEBRILE NEUTROPENIA [None]
  - MULTI-ORGAN DISORDER [None]
  - CONVULSION [None]
  - PANCREATITIS [None]
  - CARDIAC ARREST [None]
  - RESPIRATORY FAILURE [None]
  - BRADYCARDIA [None]
  - HYDROCEPHALUS [None]
  - SEPSIS [None]
